FAERS Safety Report 7971007-2 (Version None)
Quarter: 2011Q4

REPORT INFORMATION
  Report Type: 
  Country: None (occurrence: None)
  Receive Date: 20111122
  Receipt Date: 20110825
  Transmission Date: 20120403
  Serious: No
  Sender: FDA-Public Use
  Company Number: PHEH2011US02825

PATIENT
  Age: 56 Year
  Sex: Male
  Weight: 127 kg

DRUGS (1)
  1. GILENYA [Suspect]
     Indication: MULTIPLE SCLEROSIS
     Dosage: 0.5 MG, QD, ORAL
     Route: 048
     Dates: start: 20110816

REACTIONS (3)
  - VISUAL FIELD DEFECT [None]
  - HANGOVER [None]
  - INFLUENZA LIKE ILLNESS [None]
